FAERS Safety Report 6547309-3 (Version None)
Quarter: 2010Q1

REPORT INFORMATION
  Report Type: 
  Country: None (occurrence: None)
  Receive Date: 20100122
  Receipt Date: 20100114
  Transmission Date: 20100710
  Serious: Yes (Other)
  Sender: FDA-Public Use
  Company Number: JP-PFIZER INC-2009314883

PATIENT
  Age: 76 Year
  Sex: Female
  Weight: 40 kg

DRUGS (14)
  1. LIPITOR [Suspect]
     Indication: HYPERCHOLESTEROLAEMIA
     Dosage: 5 MG, UID/1X/DAY
     Route: 048
     Dates: start: 20040101, end: 20091127
  2. LIPITOR [Suspect]
     Indication: DYSLIPIDAEMIA
  3. ZOSYN [Suspect]
     Indication: URINARY TRACT INFECTION
     Dosage: 4.5 G, 3X/DAY
     Route: 041
     Dates: start: 20091124, end: 20091127
  4. ZOSYN [Suspect]
     Indication: PYELONEPHRITIS
     Dosage: 4.5 G, 2X/DAY
     Route: 041
     Dates: start: 20091128
  5. ASPIRIN [Concomitant]
     Dosage: UNK
     Route: 048
     Dates: start: 19980101
  6. GASTER [Concomitant]
     Dosage: 20 MG, UNK
     Dates: start: 20040101, end: 20091127
  7. PARIET [Concomitant]
     Dosage: UNK
     Route: 048
     Dates: start: 20091127
  8. ADALAT CC [Concomitant]
     Dosage: UNK
     Dates: start: 20040101
  9. FERROMIA [Concomitant]
     Dosage: UNK
     Route: 048
     Dates: start: 20061228
  10. RISEDRONATE SODIUM [Concomitant]
     Dosage: UNK
     Route: 048
     Dates: start: 20040101
  11. ONE-ALPHA [Concomitant]
     Dosage: UNK
     Route: 048
     Dates: start: 20020101
  12. NU LOTAN [Concomitant]
     Dosage: UNK
     Route: 048
     Dates: start: 20070507
  13. LANTUS [Concomitant]
     Dosage: UNK
     Dates: start: 20040101
  14. NOVOLIN R [Concomitant]
     Dosage: UNK
     Dates: start: 20090826

REACTIONS (1)
  - HYPERCREATINAEMIA [None]
